FAERS Safety Report 6817920-0 (Version None)
Quarter: 2010Q3

REPORT INFORMATION
  Report Type: 
  Country: None (occurrence: None)
  Receive Date: 20100706
  Receipt Date: 20100618
  Transmission Date: 20110219
  Serious: Yes (Other)
  Sender: FDA-Public Use
  Company Number: US-BAYER-200921546NA

PATIENT
  Age: 42 Year
  Sex: Female
  Weight: 118 kg

DRUGS (10)
  1. AVELOX [Suspect]
     Indication: BRONCHITIS
     Route: 065
     Dates: start: 20080814
  2. CIPRO [Suspect]
     Indication: UPPER RESPIRATORY TRACT INFECTION
     Dosage: TOTAL DAILY DOSE: 1500 MG  UNIT DOSE: 750 MG
     Route: 048
     Dates: start: 20081020, end: 20081114
  3. TESSALON [Concomitant]
  4. METFORMIN HCL [Concomitant]
     Dosage: TOTAL DAILY DOSE: 2000 MG
  5. GLIPIZIDE [Concomitant]
     Dosage: TOTAL DAILY DOSE: 20 MG
  6. DIOVAN [Concomitant]
     Dosage: TOTAL DAILY DOSE: 80 MG
  7. LOTENSIN [Concomitant]
     Dosage: TOTAL DAILY DOSE: 20 MG
  8. ASPIRIN [Concomitant]
     Dosage: TOTAL DAILY DOSE: 81 MG
  9. ZANTAC [Concomitant]
  10. LORTAB [Concomitant]
     Dosage: 5/500

REACTIONS (3)
  - BACK PAIN [None]
  - JOINT INJURY [None]
  - TENDON RUPTURE [None]
